FAERS Safety Report 6836781-7 (Version None)
Quarter: 2010Q3

REPORT INFORMATION
  Report Type: 
  Country: None (occurrence: None)
  Receive Date: 20100713
  Receipt Date: 20100706
  Transmission Date: 20110219
  Serious: Yes (Life-Threatening, Disabling)
  Sender: FDA-Public Use
  Company Number: US-ROCHE-678962

PATIENT
  Sex: Female
  Weight: 70.3 kg

DRUGS (4)
  1. BONIVA [Suspect]
     Indication: OSTEOPENIA
     Route: 048
     Dates: start: 20040505, end: 20090511
  2. BOTOX [Concomitant]
     Dosage: FOR YEARS
  3. NORVASC [Concomitant]
     Indication: HYPERTENSION
     Route: 048
     Dates: start: 19900101
  4. SIMVASTATIN [Concomitant]
     Route: 048
     Dates: start: 19950101

REACTIONS (2)
  - BLEPHAROSPASM [None]
  - MUSCLE DISORDER [None]
